FAERS Safety Report 9366968 (Version 1)
Quarter: 2013Q2

REPORT INFORMATION
  Report Type: Spontaneous
  Country: FR (occurrence: FR)
  Receive Date: 20130625
  Receipt Date: 20130625
  Transmission Date: 20140414
  Serious: Yes (Hospitalization)
  Sender: FDA-Public Use
  Company Number: FR-TEVA-414773ISR

PATIENT
  Age: 82 Year
  Sex: Male

DRUGS (3)
  1. FUROSEMIDE [Suspect]
     Dates: start: 20130127
  2. FUROSEMIDE [Suspect]
     Dosage: 120 MILLIGRAM DAILY;
     Dates: start: 2013, end: 2013
  3. FUROSEMIDE [Suspect]
     Dosage: 40 MILLIGRAM DAILY;
     Dates: start: 2013, end: 201306

REACTIONS (5)
  - Fluid retention [Unknown]
  - Pulmonary oedema [Unknown]
  - Local swelling [Unknown]
  - Somnolence [Unknown]
  - Blood pressure decreased [Unknown]
